FAERS Safety Report 6439167-2 (Version None)
Quarter: 2009Q4

REPORT INFORMATION
  Report Type: 
  Country: None (occurrence: None)
  Receive Date: 20091113
  Receipt Date: 20091111
  Transmission Date: 20100525
  Serious: Yes (Other)
  Sender: FDA-Public Use
  Company Number: US-BRISTOL-MYERS SQUIBB COMPANY-14852073

PATIENT
  Age: 71 Year
  Sex: Male
  Weight: 79 kg

DRUGS (3)
  1. COUMADIN [Suspect]
     Indication: CORONARY ARTERY BYPASS
     Dosage: 1DF=10MG ONCE A WEEK, AND 7? MG EVERY OTHER DAY
     Dates: start: 20050101
  2. COUMADIN [Suspect]
     Indication: AORTIC VALVE REPLACEMENT
     Dosage: 1DF=10MG ONCE A WEEK, AND 7? MG EVERY OTHER DAY
     Dates: start: 20050101
  3. WELLBUTRIN [Concomitant]

REACTIONS (2)
  - LYMPHOMA [None]
  - OSTEOPOROSIS [None]
